FAERS Safety Report 8086078-5 (Version None)
Quarter: 2012Q1

REPORT INFORMATION
  Report Type: 
  Country: None (occurrence: None)
  Receive Date: 20120128
  Receipt Date: 20110603
  Transmission Date: 20120608
  Serious: No
  Sender: FDA-Public Use
  Company Number: US-ABBOTT-11P-163-0730173-00

PATIENT
  Sex: Male

DRUGS (3)
  1. NAPROSYN [Concomitant]
     Indication: ARTHRITIS
  2. HUMIRA [Suspect]
     Indication: RHEUMATOID ARTHRITIS
  3. OMEPRAZOLE [Concomitant]
     Indication: DYSPEPSIA

REACTIONS (2)
  - MEDICATION ERROR [None]
  - POOR QUALITY DRUG ADMINISTERED [None]
